FAERS Safety Report 17473533 (Version 2)
Quarter: 2021Q4

REPORT INFORMATION
  Report Type: Report from Study
  Country: BR (occurrence: BR)
  Receive Date: 20200228
  Receipt Date: 20211210
  Transmission Date: 20220303
  Serious: Yes (Other)
  Sender: FDA-Public Use
  Company Number: BR-JNJFOC-20161022158

PATIENT
  Age: 64 Year
  Sex: Female
  Weight: 63 kg

DRUGS (7)
  1. SIMPONI [Suspect]
     Active Substance: GOLIMUMAB
     Indication: Rheumatoid arthritis
     Route: 058
     Dates: start: 20151022, end: 2019
  2. METHOTREXATE [Concomitant]
     Active Substance: METHOTREXATE
  3. NIMESULIDE [Concomitant]
     Active Substance: NIMESULIDE
  4. CORTISONE [Concomitant]
     Active Substance: CORTISONE
  5. AZULFIDINE [Concomitant]
     Active Substance: SULFASALAZINE
  6. PANTOPRAZOLE [Concomitant]
     Active Substance: PANTOPRAZOLE
  7. DEFLAZACORT [Concomitant]
     Active Substance: DEFLAZACORT

REACTIONS (5)
  - Rheumatoid arthritis [Not Recovered/Not Resolved]
  - Spinal osteoarthritis [Unknown]
  - Intervertebral disc compression [Unknown]
  - Gastritis [Unknown]
  - Urinary tract infection [Not Recovered/Not Resolved]

NARRATIVE: CASE EVENT DATE: 20170301
